FAERS Safety Report 4364519-4 (Version None)
Quarter: 2004Q2

REPORT INFORMATION
  Report Type: 
  Country: None (occurrence: None)
  Receive Date: 20040519
  Receipt Date: 20040506
  Transmission Date: 20050107
  Serious: Yes (Death)
  Sender: FDA-Public Use
  Company Number: 2004-BP-03516RO

PATIENT
  Age: 42 Year
  Sex: Male
  Weight: 75.8 kg

DRUGS (4)
  1. METHADONE HCL [Suspect]
  2. COCAINE HCL TOPICAL SOLUTION, 10 % (COCAINE) [Suspect]
  3. DIAZEPAM (INTENSOL ORAL SOLUTION (CONCENTRATE), 5 MG/ML (DIAZEPAM) [Suspect]
  4. ETHANOL (ETHANOL) [Suspect]

REACTIONS (9)
  - BLOOD ETHANOL INCREASED [None]
  - CARDIOMEGALY [None]
  - CORONARY ARTERY ATHEROSCLEROSIS [None]
  - DRUG INTERACTION [None]
  - DRUG TOXICITY [None]
  - PNEUMOCONIOSIS [None]
  - POLYSUBSTANCE ABUSE [None]
  - PULMONARY OEDEMA [None]
  - VENTRICULAR HYPERTROPHY [None]
